FAERS Safety Report 6837831-4 (Version None)
Quarter: 2010Q3

REPORT INFORMATION
  Report Type: 
  Country: None (occurrence: None)
  Receive Date: 20100713
  Receipt Date: 20070523
  Transmission Date: 20110219
  Serious: No
  Sender: FDA-Public Use
  Company Number: US-PFIZER INC-2007042650

PATIENT
  Sex: Female
  Weight: 72.727 kg

DRUGS (12)
  1. CHANTIX [Suspect]
     Indication: SMOKING CESSATION THERAPY
     Dates: start: 20070401
  2. ELAVIL [Concomitant]
  3. PLAVIX [Concomitant]
  4. LISINOPRIL [Concomitant]
  5. IMDUR [Concomitant]
  6. VYTORIN [Concomitant]
  7. PROTONIX [Concomitant]
  8. MONTELUKAST SODIUM [Concomitant]
  9. LOPRESSOR [Concomitant]
  10. ACETYLSALICYLIC ACID [Concomitant]
  11. VITAMIN C [Concomitant]
  12. ESTROGENS [Concomitant]

REACTIONS (2)
  - DEPRESSION [None]
  - FATIGUE [None]
